FAERS Safety Report 12885569 (Version 1)
Quarter: 2016Q4

REPORT INFORMATION
  Report Type: Spontaneous
  Country: GB (occurrence: GB)
  Receive Date: 20161026
  Receipt Date: 20161026
  Transmission Date: 20170207
  Serious: Yes (Other)
  Sender: FDA-Public Use
  Company Number: GB-GLAXOSMITHKLINE-GB2016154615

PATIENT
  Age: 85 Year
  Sex: Male
  Weight: 85 kg

DRUGS (26)
  1. ATORVASTATIN [Concomitant]
     Active Substance: ATORVASTATIN
     Dosage: 1 DF, QD
     Route: 065
     Dates: start: 20160310
  2. BUMETANIDE. [Concomitant]
     Active Substance: BUMETANIDE
     Dosage: 1 DF, QD
     Route: 065
     Dates: start: 20160422
  3. IVABRADINE [Concomitant]
     Active Substance: IVABRADINE
     Dosage: 0.5 DF, BID
     Route: 065
     Dates: start: 20160701
  4. TAMSULOSIN HYDROCHLORIDE. [Concomitant]
     Active Substance: TAMSULOSIN HYDROCHLORIDE
     Dosage: 1 DF, QD
     Route: 065
     Dates: start: 20150908
  5. MACROGOL + SODIUM BICARBONATE + SODIUM CHLORIDE + POTASSIUM CHLORIDE [Concomitant]
     Indication: FAECES HARD
     Dosage: 1 DF, QD
     Route: 065
     Dates: start: 20160920
  6. SPIRONOLACTONE. [Concomitant]
     Active Substance: SPIRONOLACTONE
     Dosage: 1 DF, QD
     Route: 065
     Dates: start: 20151222
  7. ATROPINE SULFATE. [Concomitant]
     Active Substance: ATROPINE SULFATE
     Dosage: APPLY AS DIRECTED BY SPECIALIST.
     Route: 047
     Dates: start: 20151118
  8. DUAKLIR GENUAIR [Concomitant]
     Active Substance: ACLIDINIUM BROMIDE\FORMOTEROL FUMARATE
     Dosage: 1 DF, BID
     Route: 055
     Dates: start: 20161006
  9. PREDNISOLONE. [Concomitant]
     Active Substance: PREDNISOLONE
     Dosage: USE AS DIRECTED (RESCUE PACK)
     Route: 065
     Dates: start: 20161006
  10. SALBUTAMOL [Concomitant]
     Active Substance: ALBUTEROL
     Dosage: 4 TIMES DAILY.
     Route: 065
     Dates: start: 20150908
  11. SULFASALAZINE. [Concomitant]
     Active Substance: SULFASALAZINE
     Dosage: 2 DF, BID
     Route: 065
     Dates: start: 20160704
  12. BISOPROLOL [Concomitant]
     Active Substance: BISOPROLOL
     Dosage: 6.25 MG, QD
     Route: 065
     Dates: start: 20160316
  13. TIOTROPIUM [Concomitant]
     Active Substance: TIOTROPIUM
     Dosage: 1 DF, QD
     Route: 065
     Dates: start: 20151118, end: 20160818
  14. ANORO ELLIPTA [Suspect]
     Active Substance: UMECLIDINIUM BROMIDE\VILANTEROL TRIFENATATE
     Indication: PRODUCT USED FOR UNKNOWN INDICATION
     Dosage: UNK
     Route: 065
     Dates: start: 20160818
  15. GLICLAZIDE [Concomitant]
     Active Substance: GLICLAZIDE
     Dosage: EVERY MORNING WITH BREAKFAST.
     Route: 065
     Dates: start: 20160310
  16. RAMIPRIL. [Concomitant]
     Active Substance: RAMIPRIL
     Dosage: TWICE DAILY AS PER CARDIOLOGY ADVICE.
     Route: 065
     Dates: start: 20160323
  17. LATANOPROST. [Concomitant]
     Active Substance: LATANOPROST
     Dosage: TO LEFT EYE AT NIGHT AS DIRECTED BY SPECIALIST.
     Route: 047
     Dates: start: 20160310
  18. OMEPRAZOLE. [Concomitant]
     Active Substance: OMEPRAZOLE
     Dosage: 1 DF, QD
     Route: 065
     Dates: start: 20160310
  19. ASPIRIN. [Concomitant]
     Active Substance: ASPIRIN
     Dosage: 1 DF, QD
     Route: 065
     Dates: start: 20160310
  20. CHEMYDUR XL [Concomitant]
     Dosage: 0.5 DF, BID
     Route: 065
     Dates: start: 20160303
  21. DERMOL (BENZALKONIUM CHLORIDE + CHLORHEXIDINE HCL + LIQUID PARAFFIN + [Concomitant]
     Dosage: AS DIRECTED BY DERMATOLOGIST.
     Route: 065
     Dates: start: 20160701
  22. HYPROMELLOSE [Concomitant]
     Active Substance: HYPROMELLOSES
     Dosage: UNK
     Route: 065
     Dates: start: 20160310
  23. AMOROLFINE [Concomitant]
     Active Substance: AMOROLFINE
     Dosage: APPLY AS DIRECTED
     Route: 065
     Dates: start: 20160901
  24. AMOXICILLIN. [Concomitant]
     Active Substance: AMOXICILLIN
     Dosage: 1 DF, TID
     Route: 065
     Dates: start: 20161006
  25. GLYCERYL TRINITRATE [Concomitant]
     Active Substance: NITROGLYCERIN
     Dosage: AS DIRECTED.
     Route: 065
     Dates: start: 20150225
  26. MAXIDEX [Concomitant]
     Active Substance: DEXAMETHASONE
     Dosage: 4 TIMES DAILY, RIGHT EYE, AS DIRECTED BY HOSPITAL.
     Route: 047
     Dates: start: 20150225

REACTIONS (1)
  - Lip swelling [Recovered/Resolved]

NARRATIVE: CASE EVENT DATE: 20161010
